FAERS Safety Report 18797512 (Version 1)
Quarter: 2021Q1

REPORT INFORMATION
  Report Type: Spontaneous
  Country: US (occurrence: US)
  Receive Date: 20210128
  Receipt Date: 20210128
  Transmission Date: 20210419
  Serious: No
  Sender: FDA-Public Use
  Company Number: US-NOVAST LABORATORIES LTD.-2020NOV000322

PATIENT
  Age: 44 Year
  Sex: Female

DRUGS (1)
  1. DASETTA 1/35 [Suspect]
     Active Substance: ETHINYL ESTRADIOL\NORETHINDRONE
     Indication: ORAL CONTRACEPTION
     Dosage: UNK
     Route: 048
     Dates: start: 202004, end: 20201018

REACTIONS (2)
  - Product packaging quantity issue [Unknown]
  - Product dose omission issue [Unknown]

NARRATIVE: CASE EVENT DATE: 20201019
